FAERS Safety Report 24850062 (Version 1)
Quarter: 2025Q1

REPORT INFORMATION
  Report Type: Spontaneous
  Country: US (occurrence: None)
  Receive Date: 20250115
  Receipt Date: 20250115
  Transmission Date: 20250409
  Serious: Yes (Disabling, Other)
  Sender: FDA-CTU
  Company Number: None

PATIENT
  Age: 65 Year
  Sex: Female
  Weight: 74.25 kg

DRUGS (4)
  1. VRAYLAR [Suspect]
     Active Substance: CARIPRAZINE
     Indication: Adjustment disorder with depressed mood
     Dates: start: 20241001, end: 20241113
  2. CHLORTHALIDONE [Concomitant]
     Active Substance: CHLORTHALIDONE
  3. ROSUVASTATIN [Concomitant]
     Active Substance: ROSUVASTATIN
  4. IBUPROFEN [Concomitant]
     Active Substance: IBUPROFEN

REACTIONS (7)
  - Product use issue [None]
  - Withdrawal syndrome [None]
  - Sleep disorder [None]
  - Nausea [None]
  - Dizziness [None]
  - Malaise [None]
  - Product prescribing issue [None]

NARRATIVE: CASE EVENT DATE: 20241201
